FAERS Safety Report 4497200-1 (Version None)
Quarter: 2004Q4

REPORT INFORMATION
  Report Type: 
  Country: None (occurrence: None)
  Receive Date: 20041110
  Receipt Date: 20041104
  Transmission Date: 20050328
  Serious: Yes (Hospitalization)
  Sender: FDA-Public Use
  Company Number: PHBS2004JP14919

PATIENT
  Age: 60 Year
  Sex: Male
  Weight: 61 kg

DRUGS (5)
  1. NEORAL [Suspect]
     Indication: RENAL TRANSPLANT
     Dosage: 50 MG/D
     Route: 048
     Dates: end: 20040101
  2. BREDININ [Suspect]
     Indication: RENAL TRANSPLANT
     Dosage: 100 MG/D
     Route: 048
     Dates: end: 20040101
  3. BREDININ [Suspect]
     Dosage: 100 MG/D
     Route: 048
     Dates: start: 20040101
  4. PREDNISOLONE [Suspect]
     Indication: RENAL TRANSPLANT
     Dosage: 5 MG/D
     Route: 065
     Dates: end: 20040101
  5. ADRENOCORTICOTROPHIC HORMONE [Suspect]
     Indication: RENAL TRANSPLANT
     Dosage: 10 MG/D
     Route: 042
     Dates: start: 20040101, end: 20040101

REACTIONS (4)
  - CARDIOMEGALY [None]
  - PNEUMONIA [None]
  - PULMONARY OEDEMA [None]
  - RENAL IMPAIRMENT [None]
